FAERS Safety Report 18846768 (Version 1)
Quarter: 2021Q1

REPORT INFORMATION
  Report Type: Spontaneous
  Country: FR (occurrence: FR)
  Receive Date: 20210204
  Receipt Date: 20210204
  Transmission Date: 20210419
  Serious: Yes (Hospitalization)
  Sender: FDA-Public Use
  Company Number: FR-ADDMEDICA-2021000007

PATIENT
  Age: 16 Month
  Sex: Male
  Weight: 10 kg

DRUGS (1)
  1. SIKLOS [Suspect]
     Active Substance: HYDROXYUREA
     Indication: SICKLE CELL DISEASE
     Dosage: 20 MG/KG (1000 MG) EVERY OTHER DAY AND 10 MG/KG/D (500 MG) EVERY OTHER DAY
     Route: 063
     Dates: start: 20201209

REACTIONS (2)
  - Exposure via breast milk [Unknown]
  - Urinary tract infection [Recovered/Resolved]

NARRATIVE: CASE EVENT DATE: 20201209
